FAERS Safety Report 12633638 (Version 2)
Quarter: 2016Q3

REPORT INFORMATION
  Report Type: Spontaneous
  Country: FR (occurrence: FR)
  Receive Date: 20160809
  Receipt Date: 20160915
  Transmission Date: 20161109
  Serious: Yes (Death, Other)
  Sender: FDA-Public Use
  Company Number: FR-NOVOPROD-503495

PATIENT
  Age: 82 Year
  Sex: Male

DRUGS (1)
  1. NOVORAPID [Suspect]
     Active Substance: INSULIN ASPART
     Indication: PRODUCT USED FOR UNKNOWN INDICATION
     Dosage: 80UI PER HOUR
     Route: 042
     Dates: start: 20160713, end: 20160716

REACTIONS (2)
  - Drug ineffective [Fatal]
  - Diabetes mellitus inadequate control [Fatal]

NARRATIVE: CASE EVENT DATE: 20160713
